FAERS Safety Report 7397219-7 (Version None)
Quarter: 2011Q2

REPORT INFORMATION
  Report Type: 
  Country: None (occurrence: None)
  Receive Date: 20110406
  Receipt Date: 20110328
  Transmission Date: 20111010
  Serious: Yes (Other)
  Sender: FDA-Public Use
  Company Number: US-ASTRAZENECA-2011SE09176

PATIENT
  Age: 26 Year
  Sex: Female

DRUGS (3)
  1. ATENOLOL [Suspect]
     Indication: TACHYCARDIA
     Route: 048
     Dates: start: 20110205
  2. CLOZARIL [Suspect]
     Indication: SCHIZOPHRENIA
     Route: 048
     Dates: start: 20110126
  3. CLOZARIL [Suspect]
     Route: 048
     Dates: start: 20110202

REACTIONS (5)
  - DIZZINESS [None]
  - BODY TEMPERATURE INCREASED [None]
  - TACHYCARDIA [None]
  - PALPITATIONS [None]
  - ORTHOSTATIC HYPOTENSION [None]
